FAERS Safety Report 21059580 (Version 2)
Quarter: 2022Q3

REPORT INFORMATION
  Report Type: Spontaneous
  Country: US (occurrence: US)
  Receive Date: 20220708
  Receipt Date: 20220713
  Transmission Date: 20221026
  Serious: No
  Sender: FDA-Public Use
  Company Number: US-KYOWAKIRIN-2022BKK010535

PATIENT

DRUGS (2)
  1. CRYSVITA [Suspect]
     Active Substance: BUROSUMAB-TWZA
     Indication: Hypophosphataemic osteomalacia
     Dosage: 40 MG/ML
     Route: 058
     Dates: start: 20220228
  2. CRYSVITA [Suspect]
     Active Substance: BUROSUMAB-TWZA
     Dosage: 40 MG/ML
     Route: 065
     Dates: start: 20220620

REACTIONS (2)
  - Blood phosphorus decreased [Unknown]
  - Therapeutic drug monitoring analysis incorrectly performed [Unknown]

NARRATIVE: CASE EVENT DATE: 20220704
